FAERS Safety Report 10177002 (Version 1)
Quarter: 2014Q2

REPORT INFORMATION
  Report Type: Spontaneous
  Country: CN (occurrence: CN)
  Receive Date: 20140516
  Receipt Date: 20140516
  Transmission Date: 20141212
  Serious: Yes (Other)
  Sender: FDA-Public Use
  Company Number: CN-BAYER-2014-067348

PATIENT
  Age: 87 Year
  Sex: Male

DRUGS (5)
  1. AVELOX [Suspect]
  2. PIPERACILLIN W/TAZOBACTAM [Concomitant]
  3. PHOSPHATIDYL CHOLINE [Concomitant]
  4. OMEPRAZOLE [Concomitant]
  5. AMBROXOL [Concomitant]

REACTIONS (3)
  - Altered state of consciousness [None]
  - Irritability [Recovered/Resolved]
  - Confusional state [None]
